FAERS Safety Report 5255758-9 (Version None)
Quarter: 2007Q1

REPORT INFORMATION
  Report Type: 
  Country: None (occurrence: None)
  Receive Date: 20070305
  Receipt Date: 20070221
  Transmission Date: 20070707
  Serious: Yes (Other)
  Sender: FDA-Public Use
  Company Number: FI-PFIZER INC-2007014999

PATIENT
  Sex: Male

DRUGS (32)
  1. LYRICA [Suspect]
     Route: 048
  2. THYROXIN [Concomitant]
  3. CETIRIZINE HCL [Concomitant]
  4. OMNIC [Concomitant]
  5. RIVATRIL [Concomitant]
  6. MONTELUKAST SODIUM [Concomitant]
  7. CALCICHEW-D3 [Concomitant]
  8. DETRUSITOL [Concomitant]
  9. TRIOBE [Concomitant]
  10. BIOTIN [Concomitant]
  11. EMCONCOR [Concomitant]
  12. DUREKAL [Concomitant]
  13. MEDROL [Concomitant]
  14. SIFROL [Concomitant]
  15. CYMBALTA [Concomitant]
  16. BRICANYL [Concomitant]
  17. KETOMEX [Concomitant]
  18. SERETIDE [Concomitant]
  19. ATRODUAL [Concomitant]
  20. ACETAMINOPHEN [Concomitant]
  21. RHINOCORT [Concomitant]
  22. ARTELAC [Concomitant]
  23. OCULAC [Concomitant]
  24. VISCOTEARS [Concomitant]
  25. LECROLYN [Concomitant]
  26. LACRISERT [Concomitant]
  27. BUPRENORPHINE HCL [Concomitant]
  28. DIAPAM [Concomitant]
  29. ZOLPIDEM TARTRATE [Concomitant]
  30. DIUREX [Concomitant]
  31. LEVITRA [Concomitant]
  32. HUMIRA [Concomitant]

REACTIONS (1)
  - ASTHMA [None]
